FAERS Safety Report 16317391 (Version 1)
Quarter: 2019Q2

REPORT INFORMATION
  Report Type: Report from Study
  Country: None (occurrence: GB)
  Receive Date: 20190516
  Receipt Date: 20190516
  Transmission Date: 20190711
  Serious: Yes (Hospitalization)
  Sender: FDA-Public Use
  Company Number: GB-ABBVIE-19K-167-2775814-00

PATIENT

DRUGS (1)
  1. HUMIRA [Suspect]
     Active Substance: ADALIMUMAB
     Indication: PRODUCT USED FOR UNKNOWN INDICATION
     Route: 058

REACTIONS (6)
  - Colitis ulcerative [Unknown]
  - Decreased appetite [Unknown]
  - Crohn^s disease [Unknown]
  - Mucosal disorder [Unknown]
  - Condition aggravated [Unknown]
  - Bowel movement irregularity [Unknown]
